FAERS Safety Report 5525822-5 (Version None)
Quarter: 2007Q4

REPORT INFORMATION
  Report Type: 
  Country: None (occurrence: None)
  Receive Date: 20071126
  Receipt Date: 20071115
  Transmission Date: 20080405
  Serious: Yes (Life-Threatening, Other)
  Sender: FDA-Public Use
  Company Number: JP-PFIZER INC-2007083665

PATIENT
  Sex: Female
  Weight: 59 kg

DRUGS (17)
  1. SOLU-MEDROL [Suspect]
     Indication: PROPHYLAXIS
     Dates: start: 20071001, end: 20071001
  2. ROPION [Suspect]
     Indication: POSTOPERATIVE CARE
     Route: 042
     Dates: start: 20071001, end: 20071001
  3. MUSCULAX [Concomitant]
     Route: 042
     Dates: start: 20071001, end: 20071001
  4. THIOPENTAL SODIUM [Concomitant]
     Route: 042
     Dates: start: 20071001, end: 20071001
  5. SEVOFLURANE [Concomitant]
     Route: 055
  6. ULTIVA [Concomitant]
     Dates: start: 20071001, end: 20071001
  7. DIPRIVAN [Concomitant]
     Route: 042
     Dates: start: 20071001, end: 20071001
  8. PERDIPINE [Concomitant]
     Route: 042
     Dates: start: 20071001, end: 20071001
  9. CEFAZOLIN SODIUM [Concomitant]
     Route: 042
     Dates: start: 20071001, end: 20071001
  10. BOSMIN [Concomitant]
     Route: 042
     Dates: start: 20071001, end: 20071001
  11. NEOSYNESIN [Concomitant]
     Route: 042
     Dates: start: 20071001, end: 20071001
  12. SIGMART [Concomitant]
     Route: 042
  13. EPHEDRINE [Concomitant]
     Route: 042
     Dates: start: 20071001, end: 20071001
  14. FENTANEST [Concomitant]
     Route: 042
     Dates: start: 20071001, end: 20071001
  15. HESPANDER [Concomitant]
     Route: 042
  16. URSO 250 [Concomitant]
     Route: 048
  17. GLYCYRON [Concomitant]
     Route: 048

REACTIONS (5)
  - ANAPHYLACTIC SHOCK [None]
  - NEUROGENIC SHOCK [None]
  - PROCEDURAL COMPLICATION [None]
  - SHOCK [None]
  - SHOCK HAEMORRHAGIC [None]
